FAERS Safety Report 4498509-8 (Version None)
Quarter: 2004Q4

REPORT INFORMATION
  Report Type: 
  Country: None (occurrence: None)
  Receive Date: 20041111
  Receipt Date: 20041101
  Transmission Date: 20050328
  Serious: Yes (Death)
  Sender: FDA-Public Use
  Company Number: AU-JNJFOC-20041101859

PATIENT
  Sex: Female

DRUGS (3)
  1. REOPRO [Suspect]
     Indication: ANGIOPLASTY
     Route: 042
  2. CLOPIDOGREL [Concomitant]
     Indication: ANGIOPLASTY
  3. HEPARIN [Concomitant]
     Indication: ANGIOPLASTY

REACTIONS (1)
  - HAEMORRHAGE INTRACRANIAL [None]
